FAERS Safety Report 21861240 (Version 2)
Quarter: 2023Q1

REPORT INFORMATION
  Report Type: Spontaneous
  Country: JP (occurrence: JP)
  Receive Date: 20230113
  Receipt Date: 20230309
  Transmission Date: 20230417
  Serious: Yes (Life-Threatening, Hospitalization)
  Sender: FDA-Public Use
  Company Number: JP-JNJFOC-20230124019

PATIENT
  Age: 78 Year
  Sex: Male
  Weight: 65.4 kg

DRUGS (6)
  1. ERLEADA [Suspect]
     Active Substance: APALUTAMIDE
     Indication: Prostate cancer metastatic
     Dosage: IN THE MORNING
     Route: 048
     Dates: start: 20220308, end: 20220419
  2. DEGARELIX [Suspect]
     Active Substance: DEGARELIX
     Indication: Prostate cancer metastatic
     Route: 058
     Dates: start: 20220308, end: 20220405
  3. AMLODIPINE [Concomitant]
     Active Substance: AMLODIPINE BESYLATE
     Indication: Hypertension
     Dosage: IN THE MORNING
     Route: 048
  4. INDERAL [Concomitant]
     Active Substance: PROPRANOLOL HYDROCHLORIDE
     Indication: Hypertension
     Dosage: IN THE MORNING AND EVENING
     Route: 048
  5. METGLUCO [Concomitant]
     Active Substance: METFORMIN HYDROCHLORIDE
     Indication: Diabetes mellitus
     Dosage: IN THE MORNING, AFTERNOON AND EVENING
     Route: 048
     Dates: end: 20220420
  6. HYDROCHLOROTHIAZIDE [Concomitant]
     Active Substance: HYDROCHLOROTHIAZIDE
     Indication: Hypertension
     Dosage: IN THE MORNING
     Route: 048

REACTIONS (2)
  - Interstitial lung disease [Recovered/Resolved]
  - Rash [Unknown]

NARRATIVE: CASE EVENT DATE: 20220419
